FAERS Safety Report 12096234 (Version 1)
Quarter: 2016Q1

REPORT INFORMATION
  Report Type: Other
  Country: US (occurrence: US)
  Receive Date: 20160220
  Receipt Date: 20160220
  Transmission Date: 20160526
  Serious: No
  Sender: FDA-Public Use
  Company Number: US-ACORDA-ACO_109743_2015

PATIENT
  Sex: Male

DRUGS (2)
  1. COPAXONE [Suspect]
     Active Substance: GLATIRAMER ACETATE
     Indication: PRODUCT USED FOR UNKNOWN INDICATION
     Dosage: UNK
     Route: 065
  2. AMPYRA [Suspect]
     Active Substance: DALFAMPRIDINE
     Indication: PARAESTHESIA
     Dosage: 10 MG, BID
     Route: 065
     Dates: start: 20140710

REACTIONS (3)
  - Incorrect dosage administered [Unknown]
  - Adverse drug reaction [Not Recovered/Not Resolved]
  - Off label use [Unknown]
